FAERS Safety Report 12995681 (Version 1)
Quarter: 2016Q4

REPORT INFORMATION
  Report Type: Spontaneous
  Country: HR (occurrence: HR)
  Receive Date: 20161202
  Receipt Date: 20161202
  Transmission Date: 20170207
  Serious: Yes (Hospitalization, Other)
  Sender: FDA-Public Use
  Company Number: HR-TEVA-714873ACC

PATIENT
  Age: 81 Year
  Sex: Female

DRUGS (2)
  1. PRAXITEN [Suspect]
     Active Substance: OXAZEPAM
     Route: 048
     Dates: start: 20160401
  2. NEURONTIN [Suspect]
     Active Substance: GABAPENTIN
     Dosage: WHOLE BOX
     Route: 048
     Dates: start: 20160401

REACTIONS (4)
  - Suicide attempt [Unknown]
  - Somnolence [Unknown]
  - Intentional overdose [Unknown]
  - Oxygen saturation decreased [Unknown]

NARRATIVE: CASE EVENT DATE: 20160401
